FAERS Safety Report 10160340 (Version 2)
Quarter: 2014Q2

REPORT INFORMATION
  Report Type: Spontaneous
  Country: US (occurrence: US)
  Receive Date: 20140508
  Receipt Date: 20140508
  Transmission Date: 20141212
  Serious: No
  Sender: FDA-Public Use
  Company Number: US-ELI_LILLY_AND_COMPANY-US201210008039

PATIENT
  Sex: Male

DRUGS (3)
  1. CIALIS [Suspect]
     Indication: ERECTILE DYSFUNCTION
     Dosage: 10 MG, PRN
     Dates: start: 20140422, end: 20140426
  2. TIZANIDINE [Concomitant]
     Dosage: 4 MG, UNK
  3. GABAPENTIN [Concomitant]
     Dosage: 300 MG, PRN

REACTIONS (3)
  - Vision blurred [Not Recovered/Not Resolved]
  - Intentional product misuse [Unknown]
  - Back pain [Recovered/Resolved]
